FAERS Safety Report 20518027 (Version 1)
Quarter: 2022Q1

REPORT INFORMATION
  Report Type: Report from Study
  Country: KR (occurrence: KR)
  Receive Date: 20220225
  Receipt Date: 20220225
  Transmission Date: 20220424
  Serious: Yes (Hospitalization)
  Sender: FDA-Public Use
  Company Number: KR-ELI_LILLY_AND_COMPANY-KR202202007638

PATIENT
  Age: 64 Year
  Sex: Female
  Weight: 54 kg

DRUGS (12)
  1. TALTZ [Suspect]
     Active Substance: IXEKIZUMAB
     Indication: Ankylosing spondylitis
     Dosage: 80 MG, UNKNOWN
     Route: 065
     Dates: start: 20211124, end: 20211124
  2. TALTZ [Suspect]
     Active Substance: IXEKIZUMAB
     Dosage: 80 MG, UNKNOWN
     Route: 065
     Dates: start: 20211222
  3. GABAMED [GABAPENTIN] [Concomitant]
     Indication: Ankylosing spondylitis
     Dosage: 75 MG, UNKNOWN
     Route: 065
     Dates: start: 20200717
  4. CYCLPEN [Concomitant]
     Indication: Ankylosing spondylitis
     Dosage: 10 MG, UNKNOWN
     Route: 065
     Dates: start: 20211027
  5. ESWONAMP [Concomitant]
     Indication: Prophylaxis
     Dosage: 20 MG, UNKNOWN
     Dates: start: 20181102
  6. LIVALO [Concomitant]
     Active Substance: PITAVASTATIN CALCIUM
     Indication: Dyslipidaemia
     Dosage: 4 MG, UNKNOWN
     Route: 065
     Dates: start: 20180330
  7. LORAZEPAM [Concomitant]
     Active Substance: LORAZEPAM
     Indication: Anxiety disorder
     Dosage: 0.5 MG, UNKNOWN
     Route: 065
     Dates: start: 20191025, end: 20220216
  8. TIANEPTINE [Concomitant]
     Active Substance: TIANEPTINE
     Indication: Anxiety disorder
     Dosage: UNK UNK, UNKNOWN
     Route: 065
     Dates: start: 20200717
  9. BORYUNG BUSPAR [Concomitant]
     Indication: Anxiety disorder
     Dosage: 10 MG, UNKNOWN
     Route: 065
     Dates: start: 20200717
  10. CEBICOX [Concomitant]
     Indication: Ankylosing spondylitis
     Dosage: 100 MG, UNKNOWN
     Route: 065
     Dates: start: 20211222, end: 20220218
  11. NEXIUM I.V. [Concomitant]
     Active Substance: ESOMEPRAZOLE SODIUM
     Indication: Prophylaxis
     Dosage: 40 MG, UNKNOWN
     Route: 065
     Dates: start: 20220126
  12. TRACINONE [Concomitant]
     Indication: Ankylosing spondylitis
     Dosage: 2 MG, UNKNOWN
     Route: 065
     Dates: start: 20211222

REACTIONS (1)
  - Functional gastrointestinal disorder [Recovered/Resolved]

NARRATIVE: CASE EVENT DATE: 20220117
